FAERS Safety Report 11195032 (Version 1)
Quarter: 2015Q2

REPORT INFORMATION
  Report Type: Spontaneous
  Country: US (occurrence: US)
  Receive Date: 20150617
  Receipt Date: 20150617
  Transmission Date: 20150821
  Serious: Yes (Other)
  Sender: FDA-Public Use
  Company Number: US-ACCORD-031319

PATIENT
  Age: 62 Year
  Sex: Female
  Weight: 59.1 kg

DRUGS (11)
  1. PAROXETINE [Concomitant]
     Active Substance: PAROXETINE\PAROXETINE HYDROCHLORIDE
     Indication: DEPRESSION
  2. BIOTIN [Concomitant]
     Active Substance: BIOTIN
     Indication: UTERINE LEIOMYOMA
  3. QUETIAPINE [Suspect]
     Active Substance: QUETIAPINE
     Indication: POST-TRAUMATIC STRESS DISORDER
     Dosage: 1 TABLET AT BEDTIME
     Route: 048
     Dates: start: 20150527, end: 20150529
  4. LEVOTHYROXINE [Concomitant]
     Active Substance: LEVOTHYROXINE
  5. CLONAZEPAM. [Concomitant]
     Active Substance: CLONAZEPAM
  6. FISH OIL [Concomitant]
     Active Substance: FISH OIL
  7. GLUCOSAMINE [Concomitant]
     Active Substance: GLUCOSAMINE
  8. PROBIOTIC [Concomitant]
     Active Substance: PROBIOTICS NOS
  9. ALLIUM SATIVUM [Concomitant]
  10. HYDROXYZINE [Concomitant]
     Active Substance: HYDROXYZINE\HYDROXYZINE HYDROCHLORIDE
     Indication: SLEEP DISORDER
     Dosage: 25 MG AT BEDTIME FOR SLEEP
  11. LATUDA [Concomitant]
     Active Substance: LURASIDONE HYDROCHLORIDE
     Indication: SLEEP DISORDER
     Dates: end: 20150526

REACTIONS (20)
  - Somnolence [Recovered/Resolved]
  - Dry mouth [Recovered/Resolved]
  - Increased appetite [Recovered/Resolved]
  - Gastrooesophageal reflux disease [Recovered/Resolved]
  - Heart rate increased [Recovered/Resolved]
  - Myalgia [Recovered/Resolved]
  - Muscle rigidity [Recovered/Resolved]
  - Confusional state [Not Recovered/Not Resolved]
  - Nausea [Recovered/Resolved]
  - Feeling abnormal [Not Recovered/Not Resolved]
  - Off label use [Unknown]
  - Asthenia [Not Recovered/Not Resolved]
  - Hypertension [Recovered/Resolved]
  - Decreased appetite [Not Recovered/Not Resolved]
  - Dizziness [Recovered/Resolved]
  - Arthralgia [Recovered/Resolved]
  - Pollakiuria [Recovered/Resolved]
  - Abdominal pain [Recovered/Resolved]
  - Constipation [Not Recovered/Not Resolved]
  - Oropharyngeal pain [Recovered/Resolved]

NARRATIVE: CASE EVENT DATE: 20150528
